FAERS Safety Report 22015222 (Version 1)
Quarter: 2023Q1

REPORT INFORMATION
  Report Type: Spontaneous
  Country: US (occurrence: US)
  Receive Date: 20230221
  Receipt Date: 20230221
  Transmission Date: 20230417
  Serious: Yes (Other)
  Sender: FDA-Public Use
  Company Number: US-Suven-000020

PATIENT

DRUGS (1)
  1. CALCIUM ACETATE [Suspect]
     Active Substance: CALCIUM ACETATE
     Indication: Mineral supplementation
     Dosage: PILLS
     Dates: start: 20230109

REACTIONS (4)
  - Product use complaint [Unknown]
  - Foreign body in throat [Unknown]
  - Product size issue [Unknown]
  - Wrong technique in product usage process [Unknown]
